FAERS Safety Report 6006067-1 (Version None)
Quarter: 2008Q4

REPORT INFORMATION
  Report Type: 
  Country: None (occurrence: None)
  Receive Date: 20081217
  Receipt Date: 20081204
  Transmission Date: 20090506
  Serious: Yes (Other)
  Sender: FDA-Public Use
  Company Number: US-ELI_LILLY_AND_COMPANY-US200812001652

PATIENT
  Age: 50 Year
  Sex: Female
  Weight: 75.737 kg

DRUGS (4)
  1. BYETTA [Suspect]
     Indication: TYPE 2 DIABETES MELLITUS
     Dosage: 5 UG, 2/D
     Dates: end: 20080101
  2. ALTACE [Concomitant]
     Dosage: 10 MG, DAILY (1/D)
  3. NEXIUM [Concomitant]
     Indication: PEPTIC ULCER
     Dosage: 40 MG, DAILY (1/D)
  4. MULTI-VITAMIN [Concomitant]
     Dosage: UNK, DAILY (1/D)

REACTIONS (8)
  - BLOOD CHOLESTEROL INCREASED [None]
  - COLITIS [None]
  - COUGH [None]
  - EAR CONGESTION [None]
  - NASAL CONGESTION [None]
  - NAUSEA [None]
  - PANCREATITIS ACUTE [None]
  - SPLENIC ARTERY ANEURYSM [None]
